FAERS Safety Report 7965681-4 (Version None)
Quarter: 2011Q4

REPORT INFORMATION
  Report Type: 
  Country: None (occurrence: None)
  Receive Date: 20111208
  Receipt Date: 20111128
  Transmission Date: 20120403
  Serious: Yes (Hospitalization)
  Sender: FDA-Public Use
  Company Number: CA-BAXTER-2011BH037594

PATIENT
  Age: 73 Year
  Sex: Male

DRUGS (5)
  1. DIANEAL [Suspect]
     Route: 033
  2. EXTRANEAL [Suspect]
     Indication: PERITONEAL DIALYSIS
     Route: 033
  3. PLAVIX [Concomitant]
     Indication: CEREBROVASCULAR ACCIDENT
     Route: 065
  4. DIANEAL [Suspect]
     Indication: PERITONEAL DIALYSIS
     Route: 033
  5. SENOKOT                                 /UNK/ [Concomitant]
     Indication: CONSTIPATION
     Route: 065

REACTIONS (1)
  - CEREBROVASCULAR ACCIDENT [None]
